FAERS Safety Report 20480363 (Version 1)
Quarter: 2022Q1

REPORT INFORMATION
  Report Type: Spontaneous
  Country: US (occurrence: None)
  Receive Date: 20220216
  Receipt Date: 20220216
  Transmission Date: 20220424
  Serious: Yes (Other)
  Sender: FDA-Public Use
  Company Number: 2022A065254

PATIENT
  Age: 71 Year
  Sex: Male
  Weight: 50.8 kg

DRUGS (1)
  1. SYMBICORT [Suspect]
     Active Substance: BUDESONIDE\FORMOTEROL FUMARATE DIHYDRATE
     Indication: Chronic obstructive pulmonary disease
     Dosage: 160MCG/4.5MCG, 2 PUFFS, TWICE DAILY
     Route: 055

REACTIONS (6)
  - Cerebrovascular accident [Unknown]
  - Dry mouth [Unknown]
  - Hypoacusis [Unknown]
  - Weight decreased [Unknown]
  - Lung disorder [Unknown]
  - Product label issue [Unknown]

NARRATIVE: CASE EVENT DATE: 20190101
